FAERS Safety Report 8397839-7 (Version None)
Quarter: 2012Q1

REPORT INFORMATION
  Report Type: 
  Country: None (occurrence: None)
  Receive Date: 20120323
  Receipt Date: 20110325
  Transmission Date: 20120608
  Serious: Yes (Other)
  Sender: FDA-Public Use
  Company Number: 163-21880-11010988

PATIENT
  Age: 81 Year
  Sex: Female

DRUGS (7)
  1. NEUPOGEN [Concomitant]
  2. AREDIA [Concomitant]
  3. VELCADE [Concomitant]
  4. REVLIMID [Suspect]
     Indication: MULTIPLE MYELOMA
     Dosage: 15 MG, FOR 21 DAYS, EVERY 4 WEEKS, PO ; 15 MG, X14 DAYS, PO
     Route: 048
     Dates: start: 20100501
  5. REVLIMID [Suspect]
     Indication: MULTIPLE MYELOMA
     Dosage: 15 MG, FOR 21 DAYS, EVERY 4 WEEKS, PO ; 15 MG, X14 DAYS, PO
     Route: 048
     Dates: start: 20110304
  6. DEXAMETHASONE [Concomitant]
  7. ARANESP [Concomitant]

REACTIONS (3)
  - WHITE BLOOD CELL COUNT ABNORMAL [None]
  - NEUTROPHIL COUNT DECREASED [None]
  - DEEP VEIN THROMBOSIS [None]
